FAERS Safety Report 7469976-2 (Version None)
Quarter: 2011Q2

REPORT INFORMATION
  Report Type: 
  Country: None (occurrence: None)
  Receive Date: 20110506
  Receipt Date: 20110506
  Transmission Date: 20111010
  Serious: Yes (Hospitalization)
  Sender: FDA-Public Use
  Company Number: None

PATIENT
  Age: 78 Year
  Sex: Male
  Weight: 109.1 kg

DRUGS (1)
  1. LISINOPRIL [Suspect]
     Indication: HYPERTENSION
     Dosage: 20 MG EVERY DAY PO
     Route: 048
     Dates: start: 19971104, end: 20110211

REACTIONS (2)
  - HYPERKALAEMIA [None]
  - RENAL FAILURE ACUTE [None]
